FAERS Safety Report 5154184-0 (Version None)
Quarter: 2006Q4

REPORT INFORMATION
  Report Type: 
  Country: None (occurrence: None)
  Receive Date: 20061120
  Receipt Date: 20061108
  Transmission Date: 20070319
  Serious: Yes (Hospitalization)
  Sender: FDA-Public Use
  Company Number: 2006PK02345

PATIENT
  Age: 92 Year
  Sex: Female

DRUGS (12)
  1. SEROQUEL [Suspect]
     Route: 048
     Dates: start: 20051212, end: 20051212
  2. SEROQUEL [Suspect]
     Route: 048
     Dates: start: 20051213, end: 20051213
  3. BELOC ZOK [Interacting]
     Route: 048
     Dates: start: 20030301, end: 20051213
  4. PANTOPRAZOLE SODIUM [Interacting]
     Route: 048
     Dates: end: 20051213
  5. VENLAFAXINE HCL [Interacting]
     Route: 048
     Dates: start: 20051207, end: 20051207
  6. VENLAFAXINE HCL [Interacting]
     Route: 048
     Dates: start: 20051208, end: 20051213
  7. DIGITOXIN TAB [Concomitant]
     Route: 048
     Dates: start: 20040301, end: 20051213
  8. CYNT [Concomitant]
     Route: 048
     Dates: start: 20040301, end: 20051214
  9. PREDNISOLONE [Concomitant]
     Route: 048
     Dates: start: 20040301, end: 20051213
  10. ZOPICLON [Concomitant]
     Route: 048
     Dates: start: 20051208, end: 20051213
  11. COTRIM [Concomitant]
     Dates: start: 20051208, end: 20051213
  12. NOVONORM [Concomitant]
     Route: 048
     Dates: start: 20051210, end: 20051213

REACTIONS (7)
  - CONFUSIONAL STATE [None]
  - DIZZINESS [None]
  - DRUG INTERACTION [None]
  - FALL [None]
  - GAIT DISTURBANCE [None]
  - HYPOTENSION [None]
  - SOMNOLENCE [None]
